FAERS Safety Report 8525202-4 (Version None)
Quarter: 2012Q3

REPORT INFORMATION
  Report Type: 
  Country: None (occurrence: None)
  Receive Date: 20120720
  Receipt Date: 20120712
  Transmission Date: 20120928
  Serious: Yes (Hospitalization, Other)
  Sender: FDA-Public Use
  Company Number: PHHY2012BR016047

PATIENT
  Sex: Male
  Weight: 71 kg

DRUGS (5)
  1. LOSARTAN POTASSIUM [Concomitant]
     Indication: BLOOD PRESSURE ABNORMAL
     Dosage: 1 DF, UNK
  2. DISGREN [Concomitant]
     Indication: DYSPHONIA
     Dosage: 1 DF, BID
  3. XOLAIR [Suspect]
     Indication: ASTHMA
  4. FORMOTEROL FUMARATE [Suspect]
     Indication: DYSPNOEA
     Dosage: 1 DF, BID
  5. BAMIFIX [Concomitant]
     Indication: DYSPNOEA
     Dosage: 1 DF, BID

REACTIONS (8)
  - DYSPHONIA [None]
  - MALAISE [None]
  - ASTHMA [None]
  - BLOOD PRESSURE INCREASED [None]
  - ISCHAEMIA [None]
  - PNEUMONIA [None]
  - NASOPHARYNGITIS [None]
  - COUGH [None]
